FAERS Safety Report 4267858-0 (Version None)
Quarter: 2004Q1

REPORT INFORMATION
  Report Type: 
  Country: None (occurrence: None)
  Receive Date: 20040107
  Receipt Date: 20030502
  Transmission Date: 20041129
  Serious: Yes (Hospitalization)
  Sender: FDA-Public Use
  Company Number: WAES 0305USA00232

PATIENT
  Age: 78 Year
  Sex: Female

DRUGS (1)
  1. DECADRON [Suspect]

REACTIONS (1)
  - MYOPATHY [None]
